FAERS Safety Report 9373753 (Version 3)
Quarter: 2014Q2

REPORT INFORMATION
  Report Type: Spontaneous
  Country: IT (occurrence: IT)
  Receive Date: 20130628
  Receipt Date: 20140403
  Transmission Date: 20141212
  Serious: Yes (Hospitalization)
  Sender: FDA-Public Use
  Company Number: IT-PFIZER INC-2013184361

PATIENT
  Age: 44 Year
  Sex: Male

DRUGS (2)
  1. XANAX [Suspect]
     Dosage: 2 MG TOTAL, SINGLE (0.5 MG TABS)
     Route: 048
     Dates: start: 20130523, end: 20130523
  2. CITALOPRAM HBR [Suspect]
     Dosage: 15 ML, TOTAL (1 BOTTLE), SINGLE
     Route: 048
     Dates: start: 20130523, end: 20130523

REACTIONS (7)
  - Intentional overdose [Recovered/Resolved]
  - Toxicity to various agents [Recovered/Resolved]
  - Headache [Recovered/Resolved]
  - Tremor [Recovered/Resolved]
  - Nausea [Recovered/Resolved]
  - Asthenia [Recovered/Resolved]
  - Drug abuse [Recovered/Resolved]
